FAERS Safety Report 6278677-8 (Version None)
Quarter: 2009Q3

REPORT INFORMATION
  Report Type: 
  Country: None (occurrence: None)
  Receive Date: 20090722
  Receipt Date: 20090714
  Transmission Date: 20100115
  Serious: Yes (Hospitalization)
  Sender: FDA-Public Use
  Company Number: JP-AMGEN-US356318

PATIENT

DRUGS (3)
  1. ENBREL [Suspect]
     Indication: RHEUMATOID ARTHRITIS
     Route: 058
     Dates: end: 20090501
  2. AZULFIDINE EN-TABS [Concomitant]
     Dosage: UNKNOWN
     Route: 048
     Dates: end: 20090501
  3. RHEUMATREX [Concomitant]
     Dosage: UNKNOWN
     Route: 048
     Dates: end: 20090501

REACTIONS (3)
  - CONDITION AGGRAVATED [None]
  - ORGANISING PNEUMONIA [None]
  - RHEUMATOID ARTHRITIS [None]
